FAERS Safety Report 19498898 (Version 1)
Quarter: 2021Q3

REPORT INFORMATION
  Report Type: Spontaneous
  Country: US (occurrence: US)
  Receive Date: 20210706
  Receipt Date: 20210706
  Transmission Date: 20211014
  Serious: Yes (Other)
  Sender: FDA-Public Use
  Company Number: NVSC2021US146626

PATIENT
  Sex: Female
  Weight: 81.2 kg

DRUGS (27)
  1. KORLYM [Interacting]
     Active Substance: MIFEPRISTONE
     Indication: CUSHING^S SYNDROME
     Dosage: 300 MG, QD
     Route: 048
     Dates: start: 20180419, end: 20180514
  2. CYCLOBENZAPRINE. [Concomitant]
     Active Substance: CYCLOBENZAPRINE
     Indication: PRODUCT USED FOR UNKNOWN INDICATION
     Dosage: UNK
     Route: 065
  3. SIGNIFOR [Concomitant]
     Active Substance: PASIREOTIDE DIASPARTATE
     Indication: PRODUCT USED FOR UNKNOWN INDICATION
     Dosage: UNK
     Route: 065
  4. LEVOTHYROXINE. [Suspect]
     Active Substance: LEVOTHYROXINE
     Dosage: 175 UG
     Route: 065
  5. SPIRONOLACTONE. [Concomitant]
     Active Substance: SPIRONOLACTONE
     Indication: PRODUCT USED FOR UNKNOWN INDICATION
     Dosage: UNK
     Route: 065
  6. TRULICITY [Suspect]
     Active Substance: DULAGLUTIDE
     Dosage: 3 MG
     Route: 065
  7. HUMALOG [Concomitant]
     Active Substance: INSULIN LISPRO
     Indication: PRODUCT USED FOR UNKNOWN INDICATION
     Dosage: UNK
     Route: 065
  8. RECLAST [Suspect]
     Active Substance: ZOLEDRONIC ACID
     Indication: PRODUCT USED FOR UNKNOWN INDICATION
     Dosage: UNK
     Route: 042
  9. KORLYM [Interacting]
     Active Substance: MIFEPRISTONE
     Dosage: 900 MG, QD
     Route: 065
     Dates: start: 20180717, end: 20180728
  10. KORLYM [Interacting]
     Active Substance: MIFEPRISTONE
     Dosage: 300 MG, QD
     Route: 065
     Dates: start: 20190501
  11. KORLYM [Interacting]
     Active Substance: MIFEPRISTONE
     Dosage: 600 MG, QD
     Route: 065
     Dates: start: 20190522
  12. JARDIANCE [Suspect]
     Active Substance: EMPAGLIFLOZIN
     Indication: PRODUCT USED FOR UNKNOWN INDICATION
     Dosage: 20 MG
     Route: 065
  13. FOSAMAX [Concomitant]
     Active Substance: ALENDRONATE SODIUM
     Indication: PRODUCT USED FOR UNKNOWN INDICATION
     Dosage: UNK (TAKEN FOR MANY YEARS)
     Route: 065
  14. LEVOTHYROXINE. [Suspect]
     Active Substance: LEVOTHYROXINE
     Dosage: 110 UG
     Route: 065
     Dates: start: 202012
  15. LEVOTHYROXINE. [Suspect]
     Active Substance: LEVOTHYROXINE
     Dosage: 200 UG
     Route: 065
  16. TRULICITY [Suspect]
     Active Substance: DULAGLUTIDE
     Indication: PRODUCT USED FOR UNKNOWN INDICATION
     Dosage: UNK
     Route: 065
  17. KORLYM [Interacting]
     Active Substance: MIFEPRISTONE
     Dosage: 600 MG, QD
     Route: 065
     Dates: start: 20180515
  18. KORLYM [Interacting]
     Active Substance: MIFEPRISTONE
     Dosage: 600 MG, QD
     Route: 065
     Dates: start: 20180821
  19. LEVOTHYROXINE. [Suspect]
     Active Substance: LEVOTHYROXINE
     Indication: HYPOTHYROIDISM
     Dosage: 8 UG
     Route: 065
  20. LEVOTHYROXINE. [Suspect]
     Active Substance: LEVOTHYROXINE
     Dosage: 88 UG
     Route: 065
  21. LEVOTHYROXINE. [Suspect]
     Active Substance: LEVOTHYROXINE
     Dosage: UNK (DOSE INCREASED)
     Route: 065
     Dates: start: 20201229
  22. ESCITALOPRAM [Concomitant]
     Active Substance: ESCITALOPRAM OXALATE
     Indication: PRODUCT USED FOR UNKNOWN INDICATION
     Dosage: UNK
     Route: 065
     Dates: end: 20201108
  23. KORLYM [Interacting]
     Active Substance: MIFEPRISTONE
     Dosage: 900 MG, QD
     Route: 065
     Dates: start: 201808
  24. LEVOTHYROXINE. [Suspect]
     Active Substance: LEVOTHYROXINE
     Dosage: 125 UG
     Route: 065
  25. LANTUS [Concomitant]
     Active Substance: INSULIN GLARGINE
     Indication: PRODUCT USED FOR UNKNOWN INDICATION
     Dosage: UNK
     Route: 065
  26. JARDIANCE [Suspect]
     Active Substance: EMPAGLIFLOZIN
     Dosage: 10 MG
     Route: 065
     Dates: start: 202012
  27. KETOCONAZOLE. [Suspect]
     Active Substance: KETOCONAZOLE
     Indication: PRODUCT USED FOR UNKNOWN INDICATION
     Dosage: UNK
     Route: 065

REACTIONS (26)
  - Lacrimation increased [Not Recovered/Not Resolved]
  - Drug interaction [Unknown]
  - Feeling abnormal [Not Recovered/Not Resolved]
  - Energy increased [Unknown]
  - Palpitations [Recovered/Resolved]
  - Arthralgia [Unknown]
  - Bladder disorder [Unknown]
  - Renal impairment [Recovered/Resolved]
  - Nausea [Recovering/Resolving]
  - Dysphagia [Unknown]
  - Bone density abnormal [Unknown]
  - Blood glucose decreased [Recovering/Resolving]
  - Dry mouth [Unknown]
  - Blood glucose fluctuation [Not Recovered/Not Resolved]
  - Cardiac murmur [Unknown]
  - Hypothyroidism [Not Recovered/Not Resolved]
  - Insomnia [Unknown]
  - Vascular access site swelling [Unknown]
  - Condition aggravated [Not Recovered/Not Resolved]
  - Fatigue [Unknown]
  - Pollakiuria [Recovering/Resolving]
  - Mood swings [Not Recovered/Not Resolved]
  - Weight increased [Not Recovered/Not Resolved]
  - Vertigo [Recovered/Resolved]
  - Oedema peripheral [Unknown]
  - Vomiting [Unknown]

NARRATIVE: CASE EVENT DATE: 2020
